FAERS Safety Report 7336376-5 (Version None)
Quarter: 2011Q1

REPORT INFORMATION
  Report Type: 
  Country: None (occurrence: None)
  Receive Date: 20110307
  Receipt Date: 20110302
  Transmission Date: 20110831
  Serious: Yes (Hospitalization, Disabling, Other)
  Sender: FDA-Public Use
  Company Number: US-PFIZER INC-2010152245

PATIENT
  Sex: Male

DRUGS (1)
  1. CHANTIX [Suspect]
     Indication: SMOKING CESSATION THERAPY
     Dosage: 1 MG, TABLET PER DAY
     Route: 048
     Dates: start: 20080101, end: 20080214

REACTIONS (16)
  - GRAND MAL CONVULSION [None]
  - CONFUSIONAL STATE [None]
  - ANXIETY [None]
  - TOOTH INJURY [None]
  - LOSS OF CONSCIOUSNESS [None]
  - MENTAL IMPAIRMENT [None]
  - DEPRESSION [None]
  - MOBILITY DECREASED [None]
  - VISUAL IMPAIRMENT [None]
  - MENTAL STATUS CHANGES [None]
  - AMNESIA [None]
  - SUICIDAL IDEATION [None]
  - DIZZINESS [None]
  - INJURY [None]
  - HEADACHE [None]
  - NAUSEA [None]
